FAERS Safety Report 19573324 (Version 1)
Quarter: 2021Q3

REPORT INFORMATION
  Report Type: Spontaneous
  Country: DE (occurrence: DE)
  Receive Date: 20210717
  Receipt Date: 20210717
  Transmission Date: 20211014
  Serious: Yes (Hospitalization, Other)
  Sender: FDA-Public Use
  Company Number: DE-AUROBINDO-AUR-APL-2021-029344

PATIENT
  Age: 64 Year
  Sex: Male
  Weight: 81 kg

DRUGS (8)
  1. ADDEL TRACE [Suspect]
     Active Substance: ELECTROLYTES NOS\MINERALS
     Indication: PRODUCT USED FOR UNKNOWN INDICATION
     Dosage: 10 MILLILITER, ONCE A DAY (ROUTE: CENTRAL VENOUS)
     Route: 042
     Dates: start: 20210430
  2. AMOXI?CLAVULAN [Suspect]
     Active Substance: AMOXICILLIN\CLAVULANATE POTASSIUM
     Indication: ANTIBIOTIC THERAPY
     Dosage: 1750 MILLIGRAM, ONCE A DAY
     Route: 065
     Dates: start: 20210527, end: 20210602
  3. OLIMEL [Suspect]
     Active Substance: AMINO ACIDS\DEXTROSE\SOYBEAN OIL
     Indication: PARENTERAL NUTRITION
     Dosage: 1000 MILLILITER, ONCE A DAY (ROUTE: CENTRAL VENOUS)
     Route: 042
     Dates: start: 20210616
  4. ADDEL TRACE [Suspect]
     Active Substance: ELECTROLYTES NOS\MINERALS
     Indication: PARENTERAL NUTRITION
     Dosage: 10 MILLILITER, ONCE A DAY
     Route: 042
     Dates: start: 20200527
  5. CERNEVIT [Suspect]
     Active Substance: VITAMINS
     Indication: PARENTERAL NUTRITION
     Dosage: 750 MILLIGRAM, ONCE A DAY (ROUTE: CENTRAL VENOUS)
     Route: 042
     Dates: start: 20210430
  6. CERNEVIT [Suspect]
     Active Substance: VITAMINS
     Dosage: 750 MILLIGRAM, ONCE A DAY
     Route: 042
  7. OLIMEL [Suspect]
     Active Substance: AMINO ACIDS\DEXTROSE\SOYBEAN OIL
     Dosage: 1000 MILLILITER, ONCE A DAY
     Route: 042
     Dates: start: 20210430
  8. OLIMEL [Suspect]
     Active Substance: AMINO ACIDS\DEXTROSE\SOYBEAN OIL
     Dosage: 1000 MILLILITER, ONCE A DAY
     Route: 042
     Dates: start: 20201019

REACTIONS (5)
  - Vomiting [Unknown]
  - Laboratory test abnormal [Recovering/Resolving]
  - Blood potassium increased [Recovered/Resolved]
  - Nausea [Not Recovered/Not Resolved]
  - Vascular device infection [Unknown]

NARRATIVE: CASE EVENT DATE: 20210416
